APPROVED DRUG PRODUCT: LUBIPROSTONE
Active Ingredient: LUBIPROSTONE
Strength: 24MCG
Dosage Form/Route: CAPSULE;ORAL
Application: A201442 | Product #002
Applicant: PH HEALTH LTD
Approved: Jun 27, 2022 | RLD: No | RS: No | Type: DISCN